FAERS Safety Report 5826695-3 (Version None)
Quarter: 2008Q3

REPORT INFORMATION
  Report Type: 
  Country: None (occurrence: None)
  Receive Date: 20080730
  Receipt Date: 20080724
  Transmission Date: 20090109
  Serious: Yes (Life-Threatening, Other)
  Sender: FDA-Public Use
  Company Number: PHHY2008JP14099

PATIENT
  Sex: Male

DRUGS (10)
  1. ZOMETA [Suspect]
     Indication: PAIN IN EXTREMITY
     Dosage: UNK
     Route: 042
     Dates: start: 20071002, end: 20071030
  2. ESTRACYT [Suspect]
     Indication: PROSTATIC SPECIFIC ANTIGEN INCREASED
     Dosage: UNK
     Route: 048
     Dates: end: 20071026
  3. CASODEX [Concomitant]
     Indication: PROSTATE CANCER
     Dosage: UNK
     Route: 048
     Dates: end: 20070320
  4. AVISHOT [Concomitant]
     Dosage: UNK
     Route: 048
     Dates: start: 20070522, end: 20070901
  5. PROSTAL [Concomitant]
     Indication: PROPHYLAXIS
     Dosage: UNK
     Route: 048
     Dates: start: 20060606, end: 20060613
  6. ZOLADEX [Concomitant]
     Indication: PROSTATE CANCER
     Dosage: UNK
     Dates: start: 20060613
  7. NAIXAN [Concomitant]
     Indication: PYREXIA
     Dosage: UNK
     Route: 048
     Dates: start: 20060828
  8. ALLOPURINOL [Concomitant]
     Indication: HYPERURICAEMIA
     Dosage: UNK
     Route: 048
     Dates: start: 20061205
  9. NORVASC [Concomitant]
     Indication: HYPERTENSION
     Dosage: UNK
     Route: 048
     Dates: start: 20071218
  10. DECADRON [Concomitant]
     Indication: PROSTATE CANCER
     Dosage: UNK
     Dates: start: 20070625

REACTIONS (13)
  - ANAEMIA [None]
  - BONE MARROW DISORDER [None]
  - EPISTAXIS [None]
  - HAEMATOCRIT DECREASED [None]
  - HAEMOGLOBIN DECREASED [None]
  - HAEMORRHAGE [None]
  - INFECTION [None]
  - PLATELET COUNT DECREASED [None]
  - PURPURA [None]
  - RED BLOOD CELL COUNT DECREASED [None]
  - SUBCUTANEOUS HAEMATOMA [None]
  - THROMBOCYTOPENIA [None]
  - TRANSFUSION [None]
